FAERS Safety Report 9858252 (Version 2)
Quarter: 2014Q1

REPORT INFORMATION
  Report Type: Spontaneous
  Country: FR (occurrence: FR)
  Receive Date: 20140131
  Receipt Date: 20140211
  Transmission Date: 20141002
  Serious: Yes (Other)
  Sender: FDA-Public Use
  Company Number: FR-JNJFOC-20140115897

PATIENT
  Age: 66 Year
  Sex: Female

DRUGS (3)
  1. REMICADE [Suspect]
     Indication: RHEUMATOID ARTHRITIS
     Dosage: W1 - WEEK 1
     Route: 042
     Dates: start: 20131121
  2. REMICADE [Suspect]
     Indication: RHEUMATOID ARTHRITIS
     Dosage: W6 - WEEK 6
     Route: 042
  3. REMICADE [Suspect]
     Indication: RHEUMATOID ARTHRITIS
     Dosage: W0 - WEEK 0
     Route: 042
     Dates: start: 20131107

REACTIONS (1)
  - Neuroendocrine carcinoma of the skin [Unknown]
